FAERS Safety Report 25204253 (Version 1)
Quarter: 2025Q2

REPORT INFORMATION
  Report Type: Spontaneous
  Country: US (occurrence: US)
  Receive Date: 20250416
  Receipt Date: 20250416
  Transmission Date: 20250716
  Serious: No
  Sender: LANNETT
  Company Number: LANN2401025

PATIENT
  Sex: Female

DRUGS (1)
  1. DICYCLOMINE HYDROCHLORIDE [Suspect]
     Active Substance: DICYCLOMINE HYDROCHLORIDE
     Indication: Product used for unknown indication
     Route: 065

REACTIONS (3)
  - Gastrointestinal disorder [Unknown]
  - Product physical issue [Unknown]
  - Drug ineffective [Unknown]
